FAERS Safety Report 8507509-X (Version None)
Quarter: 2012Q3

REPORT INFORMATION
  Report Type: 
  Country: None (occurrence: None)
  Receive Date: 20120713
  Receipt Date: 20120702
  Transmission Date: 20120928
  Serious: Yes (Other)
  Sender: FDA-Public Use
  Company Number: US-PAR PHARMACEUTICAL, INC-2012SCPR004485

PATIENT

DRUGS (1)
  1. HYDROXYUREA [Suspect]
     Indication: THROMBOCYTOSIS
     Dosage: UNK, UNKNOWN
     Route: 065

REACTIONS (1)
  - ADVERSE DRUG REACTION [None]
